FAERS Safety Report 14659190 (Version 1)
Quarter: 2018Q1

REPORT INFORMATION
  Report Type: Spontaneous
  Country: GB (occurrence: GB)
  Receive Date: 20180320
  Receipt Date: 20180320
  Transmission Date: 20180509
  Serious: Yes (Other)
  Sender: FDA-Public Use
  Company Number: GB-PFIZER INC-2018106962

PATIENT
  Age: 69 Year
  Sex: Female

DRUGS (1)
  1. DOXAZOSIN MESILATE [Suspect]
     Active Substance: DOXAZOSIN MESYLATE
     Indication: HYPERTENSION
     Dosage: 8 MG, UNK
     Route: 048

REACTIONS (3)
  - Somnambulism [Recovered/Resolved]
  - Nightmare [Recovered/Resolved]
  - Hallucinations, mixed [Recovered/Resolved]
